APPROVED DRUG PRODUCT: KETOROLAC TROMETHAMINE
Active Ingredient: KETOROLAC TROMETHAMINE
Strength: 15MG/ML
Dosage Form/Route: INJECTABLE;INJECTION
Application: A078299 | Product #001
Applicant: ONESOURCE SPECIALTY PTE LTD
Approved: Jul 16, 2007 | RLD: No | RS: No | Type: DISCN